FAERS Safety Report 20630504 (Version 2)
Quarter: 2022Q2

REPORT INFORMATION
  Report Type: Report from Study
  Country: JP (occurrence: JP)
  Receive Date: 20220324
  Receipt Date: 20220407
  Transmission Date: 20220721
  Serious: Yes (Hospitalization)
  Sender: FDA-Public Use
  Company Number: JP-SA-2022SA052453

PATIENT
  Age: 65 Year
  Sex: Female
  Weight: 43.6 kg

DRUGS (16)
  1. SARILUMAB [Suspect]
     Active Substance: SARILUMAB
     Indication: Rheumatoid arthritis
     Dosage: 200 MG, QOW
     Route: 058
     Dates: start: 20220202, end: 20220202
  2. SARILUMAB [Suspect]
     Active Substance: SARILUMAB
     Dosage: 200 MG, QOW
     Route: 058
     Dates: start: 20220222
  3. CEFTRIAXONE SODIUM [Suspect]
     Active Substance: CEFTRIAXONE SODIUM
     Indication: Pneumonia bacterial
     Dosage: 1 G, BID
     Route: 042
     Dates: start: 20220214, end: 20220221
  4. PREDNISOLONE [Concomitant]
     Active Substance: PREDNISOLONE
     Indication: Rheumatoid arthritis
     Dosage: 4 MG, BID
     Route: 048
     Dates: start: 20220210
  5. PREDNISOLONE [Concomitant]
     Active Substance: PREDNISOLONE
     Dosage: 10 MG, BID
     Route: 048
     Dates: start: 20220126, end: 20220202
  6. PREDNISOLONE [Concomitant]
     Active Substance: PREDNISOLONE
     Dosage: 5 MG, BID
     Route: 048
     Dates: start: 20220203, end: 20220209
  7. NEXIUM [Concomitant]
     Active Substance: ESOMEPRAZOLE MAGNESIUM
     Indication: Gastritis prophylaxis
     Dosage: 1 DF, QD
     Route: 048
     Dates: start: 20220127
  8. ASPIRIN [Concomitant]
     Active Substance: ASPIRIN
     Indication: Cardiac failure
     Dosage: 1 DF, QD
     Route: 048
  9. AMLODIPINE BESYLATE [Concomitant]
     Active Substance: AMLODIPINE BESYLATE
     Indication: Hypertension
     Dosage: 4 DF, QD
     Route: 048
     Dates: start: 20220127
  10. DOXAZOSIN [Concomitant]
     Active Substance: DOXAZOSIN MESYLATE
     Indication: Hypertension
     Dosage: 1 DF, BID
     Route: 048
  11. SULFAMETHOXAZOLE\TRIMETHOPRIM [Concomitant]
     Active Substance: SULFAMETHOXAZOLE\TRIMETHOPRIM
     Indication: Prophylaxis
     Dosage: 1 DF, BID, ON MONDAY
     Route: 048
     Dates: start: 20220207
  12. DAPRODUSTAT [Concomitant]
     Active Substance: DAPRODUSTAT
     Indication: Hypertension
     Dosage: 1 DF, QD
     Route: 048
  13. CARVEDILOL [Concomitant]
     Active Substance: CARVEDILOL
     Indication: Hypertension
     Dosage: 2 DF, BID
     Route: 048
  14. CARVEDILOL [Concomitant]
     Active Substance: CARVEDILOL
     Dosage: 2 DF, QD
     Route: 048
  15. CALONAL [Concomitant]
     Active Substance: ACETAMINOPHEN
     Indication: Headache
     Dosage: 2 DF AT THE TIME OF HAVING PAIN
     Route: 048
     Dates: start: 20220209
  16. LASIX [Concomitant]
     Active Substance: FUROSEMIDE
     Indication: Cardiac failure
     Dosage: 1 DF, QD
     Route: 048
     Dates: start: 20220219

REACTIONS (4)
  - Cholecystitis acute [Recovered/Resolved]
  - Abdominal pain upper [Recovered/Resolved]
  - Pneumonia bacterial [Recovered/Resolved]
  - Pseudocholelithiasis [Unknown]

NARRATIVE: CASE EVENT DATE: 20220214
